FAERS Safety Report 7142306-1 (Version None)
Quarter: 2010Q4

REPORT INFORMATION
  Report Type: 
  Country: None (occurrence: None)
  Receive Date: 20101112
  Receipt Date: 20100819
  Transmission Date: 20110411
  Serious: No
  Sender: FDA-Public Use
  Company Number: 1000015814

PATIENT
  Age: 59 Year
  Sex: Female

DRUGS (6)
  1. SAVELLA [Suspect]
     Indication: FIBROMYALGIA
     Dosage: SEE IMAGE: ORAL
     Route: 048
     Dates: start: 20100701, end: 20100701
  2. SAVELLA [Suspect]
     Indication: FIBROMYALGIA
     Dosage: SEE IMAGE: ORAL
     Route: 048
     Dates: start: 20100701, end: 20100701
  3. SAVELLA [Suspect]
     Indication: FIBROMYALGIA
     Dosage: SEE IMAGE: ORAL
     Route: 048
     Dates: start: 20100701, end: 20100701
  4. SAVELLA [Suspect]
     Indication: FIBROMYALGIA
     Dosage: SEE IMAGE: ORAL
     Route: 048
     Dates: start: 20100701
  5. AMBIEN [Concomitant]
  6. ZOCOR [Concomitant]

REACTIONS (2)
  - PERIPHERAL COLDNESS [None]
  - RAYNAUD'S PHENOMENON [None]
